FAERS Safety Report 6555234-7 (Version None)
Quarter: 2010Q1

REPORT INFORMATION
  Report Type: 
  Country: None (occurrence: None)
  Receive Date: 20100128
  Receipt Date: 20090112
  Transmission Date: 20100710
  Serious: No
  Sender: FDA-Public Use
  Company Number: A0758736A

PATIENT
  Age: 27 Year
  Sex: Female
  Weight: 62.7 kg

DRUGS (2)
  1. WELLBUTRIN [Suspect]
     Indication: DEPRESSION
     Dosage: 100MG TWICE PER DAY
     Route: 048
     Dates: end: 20081130
  2. TRAZODONE [Concomitant]

REACTIONS (2)
  - ABNORMAL SENSATION IN EYE [None]
  - ERYTHEMA [None]
